FAERS Safety Report 6558029-3 (Version None)
Quarter: 2010Q1

REPORT INFORMATION
  Report Type: 
  Country: None (occurrence: None)
  Receive Date: 20100129
  Receipt Date: 20100125
  Transmission Date: 20100710
  Serious: Yes (Hospitalization)
  Sender: FDA-Public Use
  Company Number: IT-ROCHE-681207

PATIENT
  Sex: Male

DRUGS (4)
  1. AVASTIN [Suspect]
     Indication: LUNG ADENOCARCINOMA METASTATIC
     Dosage: FREQUENCY: CYCLE
     Route: 042
     Dates: start: 20090902, end: 20090923
  2. ZOMETA [Concomitant]
     Dosage: FREQUENCY: UNKNOWN
     Route: 042
     Dates: start: 20090903, end: 20091016
  3. GEMZAR [Concomitant]
     Dosage: FREQUENCY: UNKNOWN
     Route: 042
     Dates: start: 20090902, end: 20090930
  4. CISPLATIN [Concomitant]
     Dosage: FREQUENCY: UNKNOWN.  DRUG REPORTED: CISPLATINO EBEWE.
     Route: 042
     Dates: start: 20090903, end: 20090924

REACTIONS (2)
  - HYPERTRANSAMINASAEMIA [None]
  - JAUNDICE [None]
